FAERS Safety Report 21575641 (Version 2)
Quarter: 2023Q1

REPORT INFORMATION
  Report Type: Spontaneous
  Country: JP (occurrence: JP)
  Receive Date: 20221110
  Receipt Date: 20230106
  Transmission Date: 20230417
  Serious: Yes (Other)
  Sender: FDA-Public Use
  Company Number: JP-CHUGAI-2022044454

PATIENT
  Age: 8 Decade
  Sex: Female

DRUGS (5)
  1. PERJETA [Suspect]
     Active Substance: PERTUZUMAB
     Indication: Breast cancer
     Dosage: STRENGTH:420MG/14 ML
     Route: 041
  2. HERCEPTIN [Suspect]
     Active Substance: TRASTUZUMAB
     Indication: Breast cancer
     Dosage: 6 MILLIGRAM/KILOGRAM, ONCE/3WEEKS
     Route: 041
  3. DOCETAXEL [Concomitant]
     Active Substance: DOCETAXEL
     Indication: Breast cancer
     Dosage: 60 MILLIGRAM, ONCE/3WEEKS
     Route: 041
  4. DOXORUBICIN HYDROCHLORIDE [Concomitant]
     Active Substance: DOXORUBICIN HYDROCHLORIDE
     Indication: Breast cancer
     Dosage: 40 MILLIGRAM/SQ. METER, ONCE/3WEEKS
     Route: 041
  5. CYCLOPHOSPHAMIDE [Concomitant]
     Active Substance: CYCLOPHOSPHAMIDE
     Indication: Breast cancer
     Dosage: 600 MILLIGRAM, ONCE/3WEEKS
     Route: 041

REACTIONS (1)
  - Cardiac dysfunction [Recovered/Resolved]

NARRATIVE: CASE EVENT DATE: 20221028
